APPROVED DRUG PRODUCT: CARBILEV
Active Ingredient: CARBIDOPA; LEVODOPA
Strength: 10MG;100MG
Dosage Form/Route: TABLET, FOR SUSPENSION;ORAL
Application: A076643 | Product #001
Applicant: RANBAXY LABORATORIES LTD
Approved: Jun 10, 2005 | RLD: No | RS: No | Type: DISCN